FAERS Safety Report 20925062 (Version 2)
Quarter: 2022Q2

REPORT INFORMATION
  Report Type: Spontaneous
  Country: CA (occurrence: CA)
  Receive Date: 20220607
  Receipt Date: 20220609
  Transmission Date: 20220721
  Serious: No
  Sender: FDA-Public Use
  Company Number: CA-PFIZER INC-202200411406

PATIENT
  Age: 52 Year
  Sex: Male

DRUGS (3)
  1. SUTENT [Suspect]
     Active Substance: SUNITINIB MALATE
     Indication: Spindle cell sarcoma
     Dosage: 25 MG, TAKE TWO CAPS ONCE DAILY FOR 14 DAYS ON, THEN TAKE 7 DAYS OFF AND REPEAT CYCLE OF 21 DAYS
  2. SUTENT [Suspect]
     Active Substance: SUNITINIB MALATE
     Indication: Soft tissue sarcoma
     Dosage: 25 MG, TAKE TWO CAPS ONCE DAILY FOR 14 DAYS ON, THEN TAKE 7 DAYS OFF AND REPEAT CYCLE OF 21 DAYS
     Dates: start: 20220317
  3. SUTENT [Suspect]
     Active Substance: SUNITINIB MALATE
     Dosage: 50 MG PO DAILY, 14 DAYS ON, 7 DAYS OFF
     Route: 048

REACTIONS (8)
  - Neoplasm progression [Unknown]
  - Off label use [Unknown]
  - Eating disorder [Unknown]
  - Fatigue [Unknown]
  - Illness [Unknown]
  - Movement disorder [Unknown]
  - Mental fatigue [Unknown]
  - Neoplasm [Unknown]
